FAERS Safety Report 18474511 (Version 9)
Quarter: 2021Q4

REPORT INFORMATION
  Report Type: Report from Study
  Country: TW (occurrence: TW)
  Receive Date: 20201106
  Receipt Date: 20211021
  Transmission Date: 20220303
  Serious: Yes (Other)
  Sender: FDA-Public Use
  Company Number: TW-TAKEDA-TW202017713

PATIENT
  Age: 15 Year
  Sex: Male

DRUGS (7)
  1. ADVATE [Suspect]
     Active Substance: ANTIHEMOPHILIC FACTOR, HUMAN RECOMBINANT
     Indication: Factor VIII deficiency
     Dosage: 1500 INTERNATIONAL UNIT, AS REQD
     Route: 050
  2. ADVATE [Suspect]
     Active Substance: ANTIHEMOPHILIC FACTOR, HUMAN RECOMBINANT
     Indication: Factor VIII deficiency
     Dosage: 1500 INTERNATIONAL UNIT, AS REQD
     Route: 050
  3. ADVATE [Suspect]
     Active Substance: ANTIHEMOPHILIC FACTOR, HUMAN RECOMBINANT
     Indication: Factor VIII deficiency
     Dosage: 1500 INTERNATIONAL UNIT, AS REQD
     Route: 050
  4. ADYNOVATE [Suspect]
     Active Substance: ANTIHEMOPHILIC FACTOR, HUMAN RECOMBINANT
     Indication: Factor VIII deficiency
     Dosage: 2000 INTERNATIONAL UNIT
     Route: 042
     Dates: start: 202010
  5. ADYNOVATE [Suspect]
     Active Substance: ANTIHEMOPHILIC FACTOR, HUMAN RECOMBINANT
     Indication: Factor VIII deficiency
     Dosage: 2000 INTERNATIONAL UNIT
     Route: 042
     Dates: start: 202010
  6. ADYNOVATE [Suspect]
     Active Substance: ANTIHEMOPHILIC FACTOR, HUMAN RECOMBINANT
     Indication: Factor VIII deficiency
     Dosage: 2000 INTERNATIONAL UNIT
     Route: 042
     Dates: start: 202010
  7. COVID-19 VACCINE NOS [Suspect]
     Active Substance: COVID-19 VACCINE NOS
     Indication: COVID-19 immunisation
     Dosage: UNK
     Route: 065

REACTIONS (8)
  - Gingival bleeding [Recovered/Resolved]
  - Contusion [Unknown]
  - Ligament sprain [Unknown]
  - Pain [Unknown]
  - Intervertebral disc protrusion [Unknown]
  - Abdominal pain [Not Recovered/Not Resolved]
  - Nausea [Not Recovered/Not Resolved]
  - COVID-19 immunisation [Not Recovered/Not Resolved]

NARRATIVE: CASE EVENT DATE: 20201128
